FAERS Safety Report 5015996-7 (Version None)
Quarter: 2006Q2

REPORT INFORMATION
  Report Type: 
  Country: None (occurrence: None)
  Receive Date: 20060525
  Receipt Date: 20060510
  Transmission Date: 20061013
  Serious: Yes (Life-Threatening, Hospitalization, Other)
  Sender: FDA-Public Use
  Company Number: JP200604000036

PATIENT
  Age: 71 Year
  Sex: Male
  Weight: 61 kg

DRUGS (6)
  1. GEMZAR [Suspect]
     Indication: PANCREATIC CARCINOMA STAGE IV
     Dosage: 1200 MG, OTHER, INTRAVENOUS
     Route: 042
     Dates: start: 20051201, end: 20060216
  2. DECADRON SRC [Concomitant]
  3. KYTRIL [Concomitant]
  4. LOCHOL (FLUVASTATIN SODIUM) TABLET [Concomitant]
  5. NORVASC /DEN/ (AMLODIPINE BESILATE) TABLET [Concomitant]
  6. ALLOPURINOL [Concomitant]

REACTIONS (6)
  - CONDITION AGGRAVATED [None]
  - DRUG ERUPTION [None]
  - HEMIPLEGIA [None]
  - PNEUMONITIS [None]
  - RESPIRATORY FAILURE [None]
  - URTICARIA [None]
